FAERS Safety Report 25301793 (Version 1)
Quarter: 2025Q2

REPORT INFORMATION
  Report Type: Spontaneous
  Country: US (occurrence: None)
  Receive Date: 20250511
  Receipt Date: 20250511
  Transmission Date: 20250717
  Serious: Yes (Other)
  Sender: FDA-CTU
  Company Number: None

PATIENT
  Age: 65 Year
  Sex: Female
  Weight: 63 kg

DRUGS (4)
  1. MONTELUKAST [Suspect]
     Active Substance: MONTELUKAST
     Dates: start: 20191123, end: 20210623
  2. LISINOPRIL [Concomitant]
     Active Substance: LISINOPRIL
  3. LORAZEPAM [Concomitant]
     Active Substance: LORAZEPAM
  4. woman^s daily vitamin [Concomitant]

REACTIONS (1)
  - Mental disorder [None]

NARRATIVE: CASE EVENT DATE: 20191123
